FAERS Safety Report 13486505 (Version 2)
Quarter: 2018Q2

REPORT INFORMATION
  Report Type: Report from Study
  Country: IT (occurrence: IT)
  Receive Date: 20170426
  Receipt Date: 20180515
  Transmission Date: 20180711
  Serious: Yes (Hospitalization)
  Sender: FDA-Public Use
  Company Number: IT-TEVA-761514ACC

PATIENT
  Age: 77 Year
  Sex: Male

DRUGS (1)
  1. PREDNISOLONE. [Suspect]
     Active Substance: PREDNISOLONE
     Indication: MYASTHENIA GRAVIS
     Dosage: 75 MILLIGRAM DAILY;
     Route: 048

REACTIONS (6)
  - Aggression [Unknown]
  - Substance-induced psychotic disorder [Unknown]
  - Agitation [Unknown]
  - Stereotypy [Unknown]
  - Insomnia [Unknown]
  - Alcohol abuse [Unknown]

NARRATIVE: CASE EVENT DATE: 20160811
